FAERS Safety Report 15095504 (Version 1)
Quarter: 2018Q3

REPORT INFORMATION
  Report Type: Spontaneous
  Country: IT (occurrence: IT)
  Receive Date: 20180702
  Receipt Date: 20180702
  Transmission Date: 20181010
  Serious: Yes (Life-Threatening, Hospitalization)
  Sender: FDA-Public Use
  Company Number: IT-TEVA-2018-IT-919214

PATIENT
  Age: 68 Year
  Sex: Male

DRUGS (2)
  1. ENALAPRIL [Concomitant]
     Active Substance: ENALAPRIL
     Indication: HYPERTENSION
     Route: 065
  2. METFORMIN [Suspect]
     Active Substance: METFORMIN HYDROCHLORIDE
     Indication: DIABETES MELLITUS
     Dosage: 200 TABLETS IN OVERDOSE
     Route: 048

REACTIONS (16)
  - Hypothermia [Recovered/Resolved]
  - Anion gap increased [Recovered/Resolved]
  - Blood urea increased [Recovered/Resolved]
  - Suicide attempt [Recovered/Resolved]
  - Hypoglycaemia [Recovered/Resolved]
  - Lactic acidosis [Recovered/Resolved]
  - Abdominal pain [Recovered/Resolved]
  - Nausea [Recovered/Resolved]
  - Tachypnoea [Recovered/Resolved]
  - Slow speech [Recovered/Resolved]
  - Coma [Recovered/Resolved]
  - Toxicity to various agents [Recovered/Resolved]
  - Tachycardia [Recovered/Resolved]
  - Disorientation [Recovered/Resolved]
  - Intentional overdose [Recovered/Resolved]
  - Blood creatinine increased [Recovered/Resolved]
